FAERS Safety Report 23866088 (Version 1)
Quarter: 2024Q2

REPORT INFORMATION
  Report Type: Spontaneous
  Country: TW (occurrence: TW)
  Receive Date: 20240517
  Receipt Date: 20240517
  Transmission Date: 20240715
  Serious: Yes (Other)
  Sender: FDA-Public Use
  Company Number: TW-SUN PHARMACEUTICAL INDUSTRIES LTD-2024R1-446418

PATIENT
  Age: 66 Year
  Sex: Female
  Weight: 54 kg

DRUGS (12)
  1. CETIRIZINE [Suspect]
     Active Substance: CETIRIZINE HYDROCHLORIDE
     Indication: Rosacea
     Dosage: UNK
     Route: 065
  2. DEXAMETHASONE [Suspect]
     Active Substance: DEXAMETHASONE
     Indication: Rosacea
     Dosage: UNK
     Route: 065
  3. DOXYCYCLINE [Suspect]
     Active Substance: DOXYCYCLINE
     Indication: Rosacea
     Dosage: UNK
     Route: 065
  4. DOXEPIN [Suspect]
     Active Substance: DOXEPIN
     Indication: Rosacea
     Dosage: UNK
     Route: 065
  5. FEXOFENADINE [Suspect]
     Active Substance: FEXOFENADINE HYDROCHLORIDE
     Indication: Rosacea
     Dosage: UNK
     Route: 065
  6. KETOTIFEN [Suspect]
     Active Substance: KETOTIFEN
     Indication: Rosacea
     Dosage: UNK
     Route: 065
  7. INDOMETHACIN [Suspect]
     Active Substance: INDOMETHACIN
     Indication: Rosacea
     Dosage: UNK
     Route: 065
  8. METRONIDAZOLE [Suspect]
     Active Substance: METRONIDAZOLE
     Indication: Rosacea
     Dosage: UNK
     Route: 065
  9. PROPRANOLOL [Suspect]
     Active Substance: PROPRANOLOL HYDROCHLORIDE
     Indication: Rosacea
     Dosage: UNK
     Route: 065
  10. BETAMETHASONE [Suspect]
     Active Substance: BETAMETHASONE\BETAMETHASONE DIPROPIONATE
     Indication: Rosacea
     Dosage: UNK
     Route: 065
  11. CLOBETASONE [Suspect]
     Active Substance: CLOBETASONE
     Indication: Rosacea
     Dosage: UNK
     Route: 065
  12. PIMECROLIMUS [Suspect]
     Active Substance: PIMECROLIMUS
     Indication: Rosacea
     Dosage: UNK
     Route: 065

REACTIONS (1)
  - Treatment failure [Unknown]
